FAERS Safety Report 4959043-1 (Version None)
Quarter: 2006Q1

REPORT INFORMATION
  Report Type: 
  Country: None (occurrence: None)
  Receive Date: 20060331
  Receipt Date: 20060210
  Transmission Date: 20060701
  Serious: Yes (Hospitalization)
  Sender: FDA-Public Use
  Company Number: US-BRISTOL-MYERS SQUIBB COMPANY-13279773

PATIENT
  Age: 46 Year
  Sex: Male
  Weight: 77 kg

DRUGS (16)
  1. IFEX [Suspect]
     Indication: LYMPHOMA
     Route: 042
     Dates: start: 20060209, end: 20060209
  2. DECADRON SRC [Concomitant]
     Indication: PREMEDICATION
  3. KYTRIL [Concomitant]
     Indication: PREMEDICATION
  4. MESNA [Concomitant]
     Dates: start: 20060209
  5. ETOPOSIDE [Concomitant]
     Indication: LYMPHOMA
     Route: 042
     Dates: start: 20060208
  6. CARBOPLATIN [Concomitant]
     Indication: LYMPHOMA
     Route: 042
     Dates: start: 20060209
  7. DARBEPOETIN ALFA [Concomitant]
  8. APREPITANT [Concomitant]
  9. ACETAMINOPHEN [Concomitant]
  10. VALACYCLOVIR [Concomitant]
  11. FLUCONAZOLE [Concomitant]
  12. ALLOPURINOL [Concomitant]
  13. ALBUMIN (HUMAN) [Concomitant]
  14. LAMIVUDINE [Concomitant]
  15. CEFEPIME HCL [Concomitant]
  16. TPN [Concomitant]

REACTIONS (4)
  - CONFUSIONAL STATE [None]
  - ENCEPHALOPATHY [None]
  - HEAD INJURY [None]
  - RENAL FAILURE ACUTE [None]
